FAERS Safety Report 6140859-3 (Version None)
Quarter: 2009Q2

REPORT INFORMATION
  Report Type: 
  Country: None (occurrence: None)
  Receive Date: 20090402
  Receipt Date: 20081216
  Transmission Date: 20091009
  Serious: No
  Sender: FDA-Public Use
  Company Number: US-KINGPHARMUSA00001-K200801410

PATIENT
  Sex: Female
  Weight: 113.38 kg

DRUGS (8)
  1. SKELAXIN [Suspect]
     Indication: PAIN
     Dosage: 800 MG, TID, AS NEEDED
     Route: 048
     Dates: end: 20081214
  2. SKELAXIN [Suspect]
     Indication: MUSCLE SPASMS
     Dosage: 400 MG, BID
     Route: 048
     Dates: start: 20081215, end: 20081215
  3. ASPIRIN [Concomitant]
     Dosage: UNK
  4. DYAZIDE [Concomitant]
     Indication: FLUID RETENTION
     Dosage: UNK
  5. PREVACID [Concomitant]
     Indication: REFLUX GASTRITIS
     Dosage: UNK
  6. TOPAMAX [Concomitant]
     Indication: HEADACHE
     Dosage: UNK
  7. XANAX [Concomitant]
     Indication: INSOMNIA
     Dosage: UNK
  8. ADVAIR HFA [Concomitant]
     Indication: ASTHMA
     Dosage: UNK

REACTIONS (3)
  - BALANCE DISORDER [None]
  - DISORIENTATION [None]
  - SOMNOLENCE [None]
